FAERS Safety Report 13261017 (Version 2)
Quarter: 2017Q2

REPORT INFORMATION
  Report Type: Spontaneous
  Country: CH (occurrence: CH)
  Receive Date: 20170222
  Receipt Date: 20170622
  Transmission Date: 20170830
  Serious: Yes (Hospitalization)
  Sender: FDA-Public Use
  Company Number: CH-ASTRAZENECA-2017SE16781

PATIENT
  Age: 50 Year
  Sex: Male

DRUGS (13)
  1. NEXIUM [Suspect]
     Active Substance: ESOMEPRAZOLE MAGNESIUM
     Indication: PROPHYLAXIS AGAINST GASTROINTESTINAL ULCER
     Route: 048
     Dates: end: 20170119
  2. BACTRIM [Interacting]
     Active Substance: SULFAMETHOXAZOLE\TRIMETHOPRIM
     Indication: ANTIBIOTIC THERAPY
     Dosage: 800.0MG UNKNOWN
     Route: 048
     Dates: start: 20170116, end: 20170118
  3. CYCLOPHOSPHAMIDE. [Interacting]
     Active Substance: CYCLOPHOSPHAMIDE
     Indication: IMMUNOSUPPRESSANT DRUG THERAPY
     Dosage: 1200.0MG UNKNOWN
     Route: 040
     Dates: start: 20170118, end: 20170118
  4. MEPHAMESONE [Concomitant]
     Active Substance: DEXAMETHASONE
     Indication: VOMITING
     Route: 040
     Dates: start: 20170116, end: 20170116
  5. URSOFALK [Concomitant]
     Active Substance: URSODIOL
     Indication: CHOLELITHIASIS
     Route: 048
     Dates: start: 20170116, end: 20170123
  6. ACETYLCYSTEINE. [Concomitant]
     Active Substance: ACETYLCYSTEINE
     Dosage: TWO TIMES A DAY
     Dates: start: 20170202, end: 20170206
  7. NEOMYCIN POLYMIXIN [Concomitant]
     Active Substance: NEOMYCIN\POLYMYXIN
     Indication: ANTIBIOTIC THERAPY
     Route: 048
     Dates: start: 20170118, end: 20170123
  8. AMOXICILLIN. [Suspect]
     Active Substance: AMOXICILLIN
     Dosage: NON AZ
     Route: 048
     Dates: start: 20170203, end: 20170203
  9. AMBISOME [Suspect]
     Active Substance: AMPHOTERICIN B
     Route: 040
     Dates: start: 20170203, end: 20170303
  10. NOXAFIL [Concomitant]
     Active Substance: POSACONAZOLE
     Dates: start: 20170304, end: 20170310
  11. ONDANSETRON [Concomitant]
     Active Substance: ONDANSETRON
     Indication: PROPHYLAXIS OF NAUSEA AND VOMITING
     Route: 040
     Dates: start: 20170118, end: 20170122
  12. ESCITALOPRAM [Concomitant]
     Active Substance: ESCITALOPRAM OXALATE
     Indication: ANXIOLYTIC THERAPY
     Route: 048
  13. EMEND [Concomitant]
     Active Substance: APREPITANT
     Indication: PROPHYLAXIS OF NAUSEA AND VOMITING
     Route: 048
     Dates: start: 20170118, end: 20170120

REACTIONS (4)
  - Drug interaction [Not Recovered/Not Resolved]
  - Hepatic function abnormal [Recovering/Resolving]
  - Acute kidney injury [Recovered/Resolved]
  - Liver injury [Recovering/Resolving]

NARRATIVE: CASE EVENT DATE: 20170116
